FAERS Safety Report 24240430 (Version 1)
Quarter: 2024Q3

REPORT INFORMATION
  Report Type: Spontaneous
  Country: JP (occurrence: JP)
  Receive Date: 20240822
  Receipt Date: 20240822
  Transmission Date: 20241016
  Serious: No
  Sender: ELI LILLY AND CO
  Company Number: JP-NShinyaku-EVA202403028ZZLILLY

PATIENT
  Age: 87 Year
  Sex: Female

DRUGS (2)
  1. TADALAFIL [Suspect]
     Active Substance: TADALAFIL
     Indication: Pulmonary hypertension
     Route: 048
  2. UPTRAVI [Suspect]
     Active Substance: SELEXIPAG
     Indication: Pulmonary hypertension
     Dosage: 0.8 MG, DAILY
     Route: 048
     Dates: start: 20201008

REACTIONS (10)
  - Visual acuity reduced [Not Recovered/Not Resolved]
  - Pruritus [Not Recovered/Not Resolved]
  - Deafness [Not Recovered/Not Resolved]
  - Dysphoria [Not Recovered/Not Resolved]
  - Dizziness [Not Recovered/Not Resolved]
  - Blood pressure increased [Not Recovered/Not Resolved]
  - Diarrhoea [Not Recovered/Not Resolved]
  - Malaise [Not Recovered/Not Resolved]
  - Pain in extremity [Not Recovered/Not Resolved]
  - Headache [Not Recovered/Not Resolved]

NARRATIVE: CASE EVENT DATE: 20230101
